FAERS Safety Report 17043541 (Version 6)
Quarter: 2020Q1

REPORT INFORMATION
  Report Type: Spontaneous
  Country: US (occurrence: US)
  Receive Date: 20191118
  Receipt Date: 20200318
  Transmission Date: 20200409
  Serious: Yes (Other)
  Sender: FDA-Public Use
  Company Number: US-PFIZER INC-2019496975

PATIENT
  Sex: Female
  Weight: 52 kg

DRUGS (5)
  1. GABAPENTIN. [Suspect]
     Active Substance: GABAPENTIN
     Dosage: 12 DF, DAILY (12 PILLS A DAY)
  2. GABAPENTIN. [Suspect]
     Active Substance: GABAPENTIN
     Indication: NEUROPATHY PERIPHERAL
     Dosage: 1200 MG, DAILY (UP TO 1200 MG/DAY)
  3. GABAPENTIN. [Suspect]
     Active Substance: GABAPENTIN
     Dosage: 300 MG, 4X/DAY (300MG TABLETS 4 TIMES A DAY;1200MG/DAY)
     Dates: start: 2013
  4. GABAPENTIN. [Suspect]
     Active Substance: GABAPENTIN
     Dosage: 1300 MG, DAILY (300MG X3 DAY; 400 MG AT BEDTIME)
     Dates: start: 2014
  5. GABAPENTIN. [Suspect]
     Active Substance: GABAPENTIN
     Dosage: 1600 MG, DAILY (1600MG /DAY MAX)

REACTIONS (5)
  - Coma [Unknown]
  - Drug ineffective for unapproved indication [Unknown]
  - Lethargy [Unknown]
  - Feeling abnormal [Unknown]
  - Off label use [Unknown]
